FAERS Safety Report 25056389 (Version 1)
Quarter: 2025Q1

REPORT INFORMATION
  Report Type: Spontaneous
  Country: US (occurrence: US)
  Receive Date: 20250310
  Receipt Date: 20250310
  Transmission Date: 20250409
  Serious: No
  Sender: AMGEN
  Company Number: US-AMGEN-USASP2025045816

PATIENT
  Age: 58 Year
  Sex: Male

DRUGS (3)
  1. ENBREL [Suspect]
     Active Substance: ETANERCEPT
     Indication: Product used for unknown indication
     Route: 065
  2. RINVOQ [Concomitant]
     Active Substance: UPADACITINIB
     Indication: Rheumatoid arthritis
     Route: 048
     Dates: start: 20200401, end: 2023
  3. RINVOQ [Concomitant]
     Active Substance: UPADACITINIB
     Route: 048

REACTIONS (4)
  - Pain [Recovering/Resolving]
  - Arthropathy [Unknown]
  - Fatigue [Recovering/Resolving]
  - Drug ineffective [Unknown]
